FAERS Safety Report 21785746 (Version 1)
Quarter: 2022Q4

REPORT INFORMATION
  Report Type: Spontaneous
  Country: BE (occurrence: BE)
  Receive Date: 20221227
  Receipt Date: 20221227
  Transmission Date: 20230113
  Serious: Yes (Hospitalization)
  Sender: FDA-Public Use
  Company Number: None

PATIENT
  Age: 54 Year
  Sex: Female
  Weight: 48 kg

DRUGS (4)
  1. HERCEPTIN [Suspect]
     Active Substance: TRASTUZUMAB
     Indication: Hormone receptor positive breast cancer
     Dosage: 6MG/KG EVERY 21 DAYS
     Route: 065
     Dates: start: 20190225
  2. ZYRTEC (BELGIUM) [Concomitant]
  3. PERJETA [Concomitant]
     Active Substance: PERTUZUMAB
     Dosage: EVERY 21 DAYS SINCE 25-02-2019
     Dates: start: 20190225
  4. ARIMIDEX [Concomitant]
     Active Substance: ANASTROZOLE
     Dosage: 1MG / DAY SINCE 27/05/2019
     Dates: start: 20190527

REACTIONS (3)
  - Nausea [Recovered/Resolved]
  - Laryngeal discomfort [Recovered/Resolved]
  - Respiration abnormal [Recovered/Resolved]

NARRATIVE: CASE EVENT DATE: 20211220
